FAERS Safety Report 15539201 (Version 5)
Quarter: 2019Q3

REPORT INFORMATION
  Report Type: Spontaneous
  Country: US (occurrence: US)
  Receive Date: 20181022
  Receipt Date: 20190708
  Transmission Date: 20191004
  Serious: No
  Sender: FDA-Public Use
  Company Number: US-ACTELION-A-NJ2018-179571

PATIENT
  Age: 74 Year
  Sex: Female

DRUGS (33)
  1. KRISTALOSE [Concomitant]
     Active Substance: LACTULOSE
  2. PANTOPRAZOLE [Concomitant]
     Active Substance: PANTOPRAZOLE
  3. ROSUVASTATIN. [Concomitant]
     Active Substance: ROSUVASTATIN
  4. TRAZODONE [Concomitant]
     Active Substance: TRAZODONE HYDROCHLORIDE
  5. L-METHYLFOLATE [Concomitant]
     Active Substance: LEVOMEFOLIC ACID
  6. OPSUMIT [Suspect]
     Active Substance: MACITENTAN
     Indication: PULMONARY ARTERIAL HYPERTENSION
     Dosage: 10 MG, QD
     Route: 048
  7. CEPHALEXIN. [Concomitant]
     Active Substance: CEPHALEXIN
  8. KETOROLAC [Concomitant]
     Active Substance: KETOROLAC TROMETHAMINE
  9. NIFEDIAC CC [Concomitant]
     Active Substance: NIFEDIPINE
  10. AMITIZA [Concomitant]
     Active Substance: LUBIPROSTONE
  11. LEXAPRO [Concomitant]
     Active Substance: ESCITALOPRAM OXALATE
  12. VENLAFAXINE [Concomitant]
     Active Substance: VENLAFAXINE HYDROCHLORIDE
  13. CLOPIDOGREL [Concomitant]
     Active Substance: CLOPIDOGREL BISULFATE
  14. METOCLOPRAM [Concomitant]
     Active Substance: METOCLOPRAMIDE
  15. OMEPRAZOLE. [Concomitant]
     Active Substance: OMEPRAZOLE
  16. AMLODIPINE [Concomitant]
     Active Substance: AMLODIPINE BESYLATE
  17. HUMIRA [Concomitant]
     Active Substance: ADALIMUMAB
  18. METHOTREXATE. [Concomitant]
     Active Substance: METHOTREXATE
  19. PROPOXYPHENE AND ACETAMINOPHEN [Concomitant]
     Active Substance: ACETAMINOPHEN\PROPOXYPHENE NAPSYLATE
  20. TORSEMIDE. [Concomitant]
     Active Substance: TORSEMIDE
  21. WARFARIN [Concomitant]
     Active Substance: WARFARIN
  22. TRIAMCINOLONE [Concomitant]
     Active Substance: TRIAMCINOLONE
     Dosage: OINTMENT 1%
  23. CLOBETASOL [Concomitant]
     Active Substance: CLOBETASOL
  24. FLUOCINOLONE ACET [Concomitant]
  25. FOLIC ACID. [Concomitant]
     Active Substance: FOLIC ACID
  26. HYDROCODONE BITARTRATE AND ACETAMINOPHEN [Concomitant]
     Active Substance: ACETAMINOPHEN\HYDROCODONE BITARTRATE
  27. XELJANZ [Concomitant]
     Active Substance: TOFACITINIB CITRATE
  28. FEXOFENADINE [Concomitant]
     Active Substance: FEXOFENADINE HYDROCHLORIDE
  29. METOPROLOL. [Concomitant]
     Active Substance: METOPROLOL
  30. NIFEDIPINE. [Concomitant]
     Active Substance: NIFEDIPINE
  31. TRAMADOL. [Concomitant]
     Active Substance: TRAMADOL
  32. VIT D [Concomitant]
     Active Substance: VITAMIN D NOS
  33. OXYGEN. [Concomitant]
     Active Substance: OXYGEN

REACTIONS (8)
  - Gastrooesophageal reflux disease [Unknown]
  - Hypotension [Unknown]
  - Malaise [Unknown]
  - Product dose omission [Unknown]
  - Dizziness [Unknown]
  - Memory impairment [Unknown]
  - Oropharyngeal pain [Unknown]
  - Dyspnoea [Not Recovered/Not Resolved]

NARRATIVE: CASE EVENT DATE: 20180910
